APPROVED DRUG PRODUCT: DILTIAZEM HYDROCHLORIDE
Active Ingredient: DILTIAZEM HYDROCHLORIDE
Strength: 240MG
Dosage Form/Route: CAPSULE, EXTENDED RELEASE;ORAL
Application: A074852 | Product #003
Applicant: ACTAVIS LABORATORIES FL INC
Approved: Oct 10, 1997 | RLD: No | RS: No | Type: DISCN